FAERS Safety Report 6824189-X (Version None)
Quarter: 2010Q3

REPORT INFORMATION
  Report Type: 
  Country: None (occurrence: None)
  Receive Date: 20100708
  Receipt Date: 20061013
  Transmission Date: 20110219
  Serious: No
  Sender: FDA-Public Use
  Company Number: US-PFIZER INC-2006127402

PATIENT
  Sex: Female
  Weight: 77.11 kg

DRUGS (6)
  1. CHANTIX [Suspect]
     Indication: SMOKING CESSATION THERAPY
     Dates: start: 20061005
  2. LEXAPRO [Concomitant]
  3. ZYRTEC-D 12 HOUR [Concomitant]
  4. MONTELUKAST [Concomitant]
  5. VYTORIN [Concomitant]
  6. LUNESTA [Concomitant]

REACTIONS (1)
  - ABDOMINAL PAIN UPPER [None]
